FAERS Safety Report 5993550-8 (Version None)
Quarter: 2008Q4

REPORT INFORMATION
  Report Type: 
  Country: None (occurrence: None)
  Receive Date: 20081212
  Receipt Date: 20081203
  Transmission Date: 20090506
  Serious: Yes (Other)
  Sender: FDA-Public Use
  Company Number: PHEH2008US10772

PATIENT
  Sex: Female

DRUGS (2)
  1. VIVELLE-DOT [Suspect]
     Dosage: 0.1 MG, UNK
     Route: 062
  2. VIVELLE-DOT [Suspect]
     Dosage: 0.75 MG, UNK
     Route: 062

REACTIONS (3)
  - APPLICATION SITE RASH [None]
  - HYSTERECTOMY [None]
  - UTERINE DISORDER [None]
